FAERS Safety Report 11506293 (Version 1)
Quarter: 2015Q3

REPORT INFORMATION
  Report Type: Spontaneous
  Country: US (occurrence: US)
  Receive Date: 20150915
  Receipt Date: 20150915
  Transmission Date: 20151125
  Serious: Yes (Other)
  Sender: FDA-Public Use
  Company Number: US-ROCHE-721355

PATIENT
  Age: 52 Year
  Sex: Female

DRUGS (3)
  1. PEGASYS [Suspect]
     Active Substance: PEGINTERFERON ALFA-2A
     Indication: HEPATITIS C
     Dosage: PRODUCT COMPLAINT
     Route: 058
  2. RIBAVIRIN. [Suspect]
     Active Substance: RIBAVIRIN
     Indication: HEPATITIS C
     Dosage: FREQUENCY: QD
     Route: 048
  3. PEGASYS [Suspect]
     Active Substance: PEGINTERFERON ALFA-2A
     Dosage: FORM: PRE-FILLED SYRINGE, FREQUENCY EVERY WEEK
     Route: 058

REACTIONS (10)
  - Asthenia [Unknown]
  - White blood cell count decreased [Recovering/Resolving]
  - Diarrhoea [Not Recovered/Not Resolved]
  - Product quality issue [Unknown]
  - Headache [Unknown]
  - Sleep disorder [Unknown]
  - Nausea [Unknown]
  - Product packaging quantity issue [Unknown]
  - Localised infection [Not Recovered/Not Resolved]
  - Hangover [Unknown]

NARRATIVE: CASE EVENT DATE: 20100806
